FAERS Safety Report 6380499-4 (Version None)
Quarter: 2009Q3

REPORT INFORMATION
  Report Type: 
  Country: None (occurrence: None)
  Receive Date: 20090924
  Receipt Date: 20090915
  Transmission Date: 20100115
  Serious: Yes (Death, Life-Threatening, Hospitalization, Disabling, Other)
  Sender: FDA-Public Use
  Company Number: 2008-04639

PATIENT
  Age: 59 Year
  Sex: Female
  Weight: 130.6 kg

DRUGS (2)
  1. VELCADE [Suspect]
     Indication: MULTIPLE MYELOMA
     Dosage: 2.5 MG, INTRAVENOUS
     Route: 042
     Dates: start: 20080811, end: 20081023
  2. DECADRON [Concomitant]

REACTIONS (20)
  - ACUTE RESPIRATORY FAILURE [None]
  - ANAEMIA [None]
  - APALLIC SYNDROME [None]
  - ASTHENIA [None]
  - CARDIAC FAILURE CONGESTIVE [None]
  - CEREBRAL DISORDER [None]
  - COMA [None]
  - CONVULSION [None]
  - DIABETES MELLITUS INADEQUATE CONTROL [None]
  - GENERAL PHYSICAL HEALTH DETERIORATION [None]
  - HYPOTENSION [None]
  - HYPOXIC ENCEPHALOPATHY [None]
  - LOBAR PNEUMONIA [None]
  - MALAISE [None]
  - MULTI-ORGAN FAILURE [None]
  - PLEURAL EFFUSION [None]
  - PRODUCTIVE COUGH [None]
  - PULMONARY OEDEMA [None]
  - RENAL FAILURE [None]
  - SEPSIS [None]
